FAERS Safety Report 20108296 (Version 1)
Quarter: 2021Q4

REPORT INFORMATION
  Report Type: Spontaneous
  Country: US (occurrence: US)
  Receive Date: 20211124
  Receipt Date: 20211124
  Transmission Date: 20220303
  Serious: No
  Sender: FDA-Public Use
  Company Number: US-BEH-2021138494

PATIENT
  Sex: Male

DRUGS (2)
  1. HIZENTRA [Suspect]
     Active Substance: HUMAN IMMUNOGLOBULIN G
     Indication: Immunodeficiency common variable
     Dosage: 4 GRAM, QW
     Route: 058
     Dates: start: 20181005
  2. HIZENTRA [Suspect]
     Active Substance: HUMAN IMMUNOGLOBULIN G
     Dosage: 1 GRAM, QW
     Route: 058
     Dates: start: 20181005

REACTIONS (7)
  - Infusion site erythema [Unknown]
  - Infusion site pain [Unknown]
  - Infusion site erythema [Unknown]
  - Infusion site pain [Unknown]
  - Infusion site extravasation [Unknown]
  - No adverse event [Unknown]
  - Incorrect drug administration rate [Unknown]
